FAERS Safety Report 4705541-5 (Version None)
Quarter: 2005Q2

REPORT INFORMATION
  Report Type: 
  Country: None (occurrence: None)
  Receive Date: 20050629
  Receipt Date: 20050531
  Transmission Date: 20051028
  Serious: Yes (Death, Hospitalization, Other)
  Sender: FDA-Public Use
  Company Number: 200112713EU

PATIENT
  Age: 58 Year
  Sex: Male

DRUGS (4)
  1. CISPLATIN [Suspect]
     Indication: SQUAMOUS CELL CARCINOMA
     Dosage: 100 MG/M**2 Q3W IV
     Route: 042
     Dates: start: 20010411, end: 20010411
  2. FLUOROURACIL [Suspect]
     Indication: SQUAMOUS CELL CARCINOMA
     Dosage: 1000 MG/M**2 Q3W IV
     Route: 042
     Dates: start: 20010411, end: 20010415
  3. FENTANYL PLASTER [Concomitant]
  4. PIROXICAM [Concomitant]

REACTIONS (11)
  - CARDIOMEGALY [None]
  - CHEST PAIN [None]
  - ERYTHEMA [None]
  - HEPATIC CONGESTION [None]
  - HERPES VIRUS INFECTION [None]
  - LUNG INFECTION [None]
  - MUCOSAL INFLAMMATION [None]
  - PLEURAL EFFUSION [None]
  - PULMONARY CONGESTION [None]
  - PULMONARY OEDEMA [None]
  - SPLEEN CONGESTION [None]
